FAERS Safety Report 9305204 (Version 2)
Quarter: 2013Q2

REPORT INFORMATION
  Report Type: Report from Study
  Country: GB (occurrence: GB)
  Receive Date: 20130523
  Receipt Date: 20130603
  Transmission Date: 20140414
  Serious: Yes (Death, Hospitalization, Other)
  Sender: FDA-Public Use
  Company Number: GB-MILLENNIUM PHARMACEUTICALS, INC.-2013-01371

PATIENT
  Sex: 0

DRUGS (6)
  1. VELCADE [Suspect]
     Indication: PLASMA CELL MYELOMA
     Dosage: 1 MG/M2, CYCLIC
     Route: 042
     Dates: start: 20121122
  2. DOXORUBICIN [Suspect]
     Indication: PLASMA CELL MYELOMA
     Dosage: 9 MG/M2, CYCLIC
     Route: 042
     Dates: start: 20121122
  3. DEXAMETHASONE [Suspect]
     Indication: PLASMA CELL MYELOMA
     Dosage: 40 MG, CYCLIC
     Route: 065
  4. ACICLOVIR [Concomitant]
     Dosage: 200 MG, UNK
  5. LANSOPRAZOLE [Concomitant]
     Dosage: 30 MG, UNK
  6. DOMPERIDONE [Concomitant]

REACTIONS (8)
  - Diplopia [Not Recovered/Not Resolved]
  - Back pain [Not Recovered/Not Resolved]
  - Headache [Not Recovered/Not Resolved]
  - Haemorrhage intracranial [Fatal]
  - Thrombocytopenia [Fatal]
  - Plasma cell myeloma [Fatal]
  - Subdural haematoma [Unknown]
  - Renal failure chronic [Unknown]
